FAERS Safety Report 8954414 (Version 1)
Quarter: 2012Q4

REPORT INFORMATION
  Report Type: Report from Study
  Country: ES (occurrence: ES)
  Receive Date: 20121207
  Receipt Date: 20121207
  Transmission Date: 20130627
  Serious: Yes (Death, Hospitalization)
  Sender: FDA-Public Use
  Company Number: ES-CELGENEUS-144-CC223-12113866

PATIENT
  Age: 67 Year
  Sex: Male
  Weight: 56 kg

DRUGS (14)
  1. CC-223 [Suspect]
     Indication: NON-SMALL CELL LUNG CANCER
     Route: 048
     Dates: start: 20121023
  2. CC-223 [Suspect]
     Route: 048
     Dates: start: 20121127, end: 20121127
  3. AZACITIDINE [Suspect]
     Indication: NON-SMALL CELL LUNG CANCER
     Route: 048
     Dates: start: 20121023
  4. AZACITIDINE [Suspect]
     Route: 048
     Dates: start: 20121127
  5. PARACETAMOL [Concomitant]
     Indication: PAIN
     Dosage: 3000 Milligram
     Route: 048
     Dates: start: 201209, end: 20121129
  6. IBUPROFEN [Concomitant]
     Indication: PAIN
     Dosage: 1800 Milligram
     Route: 048
     Dates: start: 201209, end: 20121129
  7. OMEPRAZOLE [Concomitant]
     Indication: PROPHYLAXIS
     Dosage: 20 Milligram
     Route: 048
     Dates: start: 201209, end: 20121129
  8. CODEIN [Concomitant]
     Indication: PAIN
     Dosage: 30 Milligram
     Route: 048
     Dates: start: 201209, end: 20121129
  9. PRIMPERAN [Concomitant]
     Indication: NAUSEA
     Dosage: 30 Milligram
     Route: 048
     Dates: start: 20121120, end: 20121129
  10. PRIMPERAN [Concomitant]
     Indication: VOMITING
  11. ONDANSETRON [Concomitant]
     Indication: NAUSEA
     Dosage: 8 Milligram
     Route: 048
     Dates: start: 20121120, end: 20121129
  12. SERETIDE [Concomitant]
     Indication: DRUG USE FOR UNKNOWN INDICATION
     Route: 065
  13. TRAMADOL [Concomitant]
     Indication: DRUG USE FOR UNKNOWN INDICATION
     Dosage: 150 Milligram
     Route: 065
  14. DEXAMETHASONE [Concomitant]
     Indication: PAIN IN HIP
     Dosage: 4 Milligram
     Route: 065

REACTIONS (12)
  - Pulmonary embolism [Fatal]
  - Asthenia [None]
  - Decreased appetite [None]
  - Nausea [None]
  - Weight decreased [None]
  - Syncope [None]
  - Blood pH decreased [None]
  - Renal failure [None]
  - Non-small cell lung cancer [None]
  - Malignant neoplasm progression [None]
  - Neutropenic sepsis [None]
  - Acute respiratory failure [None]
